FAERS Safety Report 19306170 (Version 1)
Quarter: 2021Q2

REPORT INFORMATION
  Report Type: Spontaneous
  Country: US (occurrence: US)
  Receive Date: 20210525
  Receipt Date: 20210525
  Transmission Date: 20210717
  Serious: Yes (Hospitalization)
  Sender: FDA-Public Use
  Company Number: US-ELI_LILLY_AND_COMPANY-US202105006725

PATIENT
  Age: 51 Year
  Sex: Female

DRUGS (2)
  1. TALTZ [Suspect]
     Active Substance: IXEKIZUMAB
     Dosage: 160 MG, UNKNOWN (TWO INJECTIONS OF 80 MG)
     Route: 058
     Dates: start: 202105
  2. TALTZ [Suspect]
     Active Substance: IXEKIZUMAB
     Indication: PSORIASIS
     Dosage: 80 MG, (LOADING DOSE)
     Route: 058
     Dates: start: 20210502

REACTIONS (5)
  - Injection site urticaria [Unknown]
  - Inappropriate schedule of product administration [Unknown]
  - Cellulitis [Unknown]
  - Sepsis [Unknown]
  - Injection site erythema [Unknown]

NARRATIVE: CASE EVENT DATE: 202105
